FAERS Safety Report 19328488 (Version 1)
Quarter: 2021Q2

REPORT INFORMATION
  Report Type: Spontaneous
  Country: RU (occurrence: RU)
  Receive Date: 20210528
  Receipt Date: 20210528
  Transmission Date: 20210717
  Serious: Yes (Hospitalization)
  Sender: FDA-Public Use
  Company Number: NVSC2021RU119010

PATIENT
  Age: 28 Year
  Sex: Female
  Weight: 60 kg

DRUGS (65)
  1. PLAQUENIL [Suspect]
     Active Substance: HYDROXYCHLOROQUINE SULFATE
     Indication: PERIPHERAL VENOUS DISEASE
  2. SOLU?MEDROL [Suspect]
     Active Substance: METHYLPREDNISOLONE SODIUM SUCCINATE
     Indication: PERIPHERAL VENOUS DISEASE
  3. SYNAFLAN [Suspect]
     Active Substance: FLUOCINOLONE ACETONIDE
     Indication: RASH
     Dosage: UNK
     Route: 031
  4. SYNAFLAN [Suspect]
     Active Substance: FLUOCINOLONE ACETONIDE
     Indication: CONJUNCTIVITIS
  5. DEXAMETHASONE. [Suspect]
     Active Substance: DEXAMETHASONE
     Indication: CONJUNCTIVITIS
     Dosage: 8 MG
     Route: 042
  6. DEXAMETHASONE. [Suspect]
     Active Substance: DEXAMETHASONE
     Indication: PERIPHERAL VENOUS DISEASE
  7. HYDROCORTISONE. [Suspect]
     Active Substance: HYDROCORTISONE
     Indication: VARICOSE VEIN
  8. ERYTHROMYCIN. [Suspect]
     Active Substance: ERYTHROMYCIN
     Indication: TOXIC SKIN ERUPTION
     Dosage: UNK
     Route: 065
  9. OMEZ [Suspect]
     Active Substance: OMEPRAZOLE
     Indication: VARICOSE VEIN
  10. CEFTRIAXON [Suspect]
     Active Substance: CEFTRIAXONE
     Indication: PUSTULAR PSORIASIS
     Dosage: UNK, 1.0, BID (FOR 5?7 DAYS)
     Route: 042
  11. PREDNISOLONE. [Suspect]
     Active Substance: PREDNISOLONE
     Indication: PERIPHERAL VENOUS DISEASE
     Dosage: 500 MG, 250?500 MG
     Route: 042
  12. SOLU?MEDROL [Suspect]
     Active Substance: METHYLPREDNISOLONE SODIUM SUCCINATE
     Indication: VARICOSE VEIN
     Dosage: 250 MG, NO.5
     Route: 065
  13. METHYLENE BLUE. [Suspect]
     Active Substance: METHYLENE BLUE
     Indication: CONJUNCTIVITIS
  14. METHYLENE BLUE. [Suspect]
     Active Substance: METHYLENE BLUE
     Indication: ARTHRITIS REACTIVE
  15. HYDROGEN PEROXIDE. [Suspect]
     Active Substance: HYDROGEN PEROXIDE
     Indication: RASH PAPULAR
     Dosage: UNK
     Route: 065
  16. DEXAMETHASONE. [Suspect]
     Active Substance: DEXAMETHASONE
     Indication: VARICOSE VEIN
  17. AZITHROMYCIN ANHYDROUS. [Suspect]
     Active Substance: AZITHROMYCIN ANHYDROUS
     Indication: TOXIC SKIN ERUPTION
     Dosage: 500 MG
     Route: 065
  18. AZITHROMYCIN ANHYDROUS. [Suspect]
     Active Substance: AZITHROMYCIN ANHYDROUS
     Indication: VARICOSE VEIN
  19. AZITHROMYCIN ANHYDROUS. [Suspect]
     Active Substance: AZITHROMYCIN ANHYDROUS
     Indication: PERIPHERAL VENOUS DISEASE
  20. QUAMATEL [Suspect]
     Active Substance: FAMOTIDINE
     Indication: CONJUNCTIVITIS
  21. HYDROCORTISONE. [Suspect]
     Active Substance: HYDROCORTISONE
     Indication: ARTHRITIS REACTIVE
  22. CEFTRIAXON [Suspect]
     Active Substance: CEFTRIAXONE
     Indication: SUBCORNEAL PUSTULAR DERMATOSIS
  23. PREDNISOLONE. [Suspect]
     Active Substance: PREDNISOLONE
     Indication: ARTHRITIS REACTIVE
     Dosage: 60 MG, ONCE/SINGLE
     Route: 030
  24. SYNAFLAN [Suspect]
     Active Substance: FLUOCINOLONE ACETONIDE
     Indication: PERIPHERAL VENOUS DISEASE
  25. QUAMATEL [Suspect]
     Active Substance: FAMOTIDINE
     Indication: VARICOSE VEIN
  26. HYDROCORTISONE. [Suspect]
     Active Substance: HYDROCORTISONE
     Indication: TOXIC SKIN ERUPTION
     Dosage: UNK
     Route: 065
  27. ERYTHROMYCIN. [Suspect]
     Active Substance: ERYTHROMYCIN
     Indication: VARICOSE VEIN
  28. OMEZ [Suspect]
     Active Substance: OMEPRAZOLE
     Indication: PERIPHERAL VENOUS DISEASE
  29. PLAQUENIL [Suspect]
     Active Substance: HYDROXYCHLOROQUINE SULFATE
     Indication: ARTHRITIS REACTIVE
     Dosage: 200 MG (INCREASED TO TWO TABLETS FROM 09 NOV 2019)
     Route: 065
     Dates: start: 20191106
  30. METYPRED [Suspect]
     Active Substance: METHYLPREDNISOLONE
     Indication: PRODUCT USED FOR UNKNOWN INDICATION
     Dosage: UNK
     Route: 065
  31. DEXAMETHASONE. [Suspect]
     Active Substance: DEXAMETHASONE
     Indication: ARTHRITIS REACTIVE
  32. QUAMATEL [Suspect]
     Active Substance: FAMOTIDINE
     Indication: ARTHRITIS REACTIVE
  33. SULFACYL [SULFACETAMIDE SODIUM] [Suspect]
     Active Substance: SULFACETAMIDE SODIUM
     Indication: TOXIC SKIN ERUPTION
     Dosage: UNK
     Route: 065
  34. ERYTHROMYCIN. [Suspect]
     Active Substance: ERYTHROMYCIN
     Indication: CONJUNCTIVITIS
  35. ERYTHROMYCIN. [Suspect]
     Active Substance: ERYTHROMYCIN
     Indication: PERIPHERAL VENOUS DISEASE
  36. DERMATOL [BISMUTH SUBGALLATE] [Suspect]
     Active Substance: BISMUTH SUBGALLATE
     Indication: PUSTULE
     Dosage: UNK
     Route: 065
  37. ALBUCID [Suspect]
     Active Substance: SULFACETAMIDE SODIUM
     Indication: SUBCORNEAL PUSTULAR DERMATOSIS
  38. CHLOROPYRAMINE [Suspect]
     Active Substance: CHLOROPYRAMINE
     Indication: PUSTULAR PSORIASIS
     Dosage: 1 ML (BEFORE BEDTIME)
     Route: 030
  39. AZITHROMYCIN ANHYDROUS. [Suspect]
     Active Substance: AZITHROMYCIN ANHYDROUS
     Indication: CONJUNCTIVITIS
  40. QUAMATEL [Suspect]
     Active Substance: FAMOTIDINE
     Indication: TOXIC SKIN ERUPTION
     Dosage: 20 MG
     Route: 061
  41. QUAMATEL [Suspect]
     Active Substance: FAMOTIDINE
     Indication: PERIPHERAL VENOUS DISEASE
  42. SULFACYL [SULFACETAMIDE SODIUM] [Suspect]
     Active Substance: SULFACETAMIDE SODIUM
     Indication: ARTHRITIS REACTIVE
  43. ERYTHROMYCIN. [Suspect]
     Active Substance: ERYTHROMYCIN
     Indication: ARTHRITIS REACTIVE
  44. PLAQUENIL [Suspect]
     Active Substance: HYDROXYCHLOROQUINE SULFATE
     Indication: VARICOSE VEIN
  45. SYNAFLAN [Suspect]
     Active Substance: FLUOCINOLONE ACETONIDE
     Indication: ARTHRITIS REACTIVE
  46. SYNAFLAN [Suspect]
     Active Substance: FLUOCINOLONE ACETONIDE
     Indication: VARICOSE VEIN
  47. AKRIDERM GENTA [BETAMETHASONE DIPROPIONATE/GENTAMICIN] [Suspect]
     Active Substance: BETAMETHASONE DIPROPIONATE\GENTAMICIN SULFATE
     Indication: PUSTULE
     Dosage: 2:1 RATIO, BID
     Route: 065
  48. CHLOROPYRAMINE [Suspect]
     Active Substance: CHLOROPYRAMINE
     Indication: SUBCORNEAL PUSTULAR DERMATOSIS
  49. DEXAMETHASONE. [Suspect]
     Active Substance: DEXAMETHASONE
     Indication: TOXIC SKIN ERUPTION
     Dosage: 6 DF, QD (TABLET, 0.5 MG STRENGTH)
     Route: 065
  50. SULFACYL [SULFACETAMIDE SODIUM] [Suspect]
     Active Substance: SULFACETAMIDE SODIUM
     Indication: PERIPHERAL VENOUS DISEASE
  51. SOLU?MEDROL [Suspect]
     Active Substance: METHYLPREDNISOLONE SODIUM SUCCINATE
     Indication: ARTHRITIS REACTIVE
     Dosage: 125 MG, NO.1
     Route: 065
  52. SYNAFLAN [Suspect]
     Active Substance: FLUOCINOLONE ACETONIDE
     Indication: TOXIC SKIN ERUPTION
  53. ALBUCID [Suspect]
     Active Substance: SULFACETAMIDE SODIUM
     Indication: PUSTULAR PSORIASIS
     Dosage: UNK, Q6H
     Route: 065
  54. METHYLENE BLUE. [Suspect]
     Active Substance: METHYLENE BLUE
     Indication: VARICOSE VEIN
  55. HYDROCORTISONE. [Suspect]
     Active Substance: HYDROCORTISONE
     Indication: PERIPHERAL VENOUS DISEASE
  56. OMEZ [Suspect]
     Active Substance: OMEPRAZOLE
     Indication: ARTHRITIS REACTIVE
     Dosage: 20 MG
     Route: 065
     Dates: start: 20191106
  57. PREDNISOLONE. [Suspect]
     Active Substance: PREDNISOLONE
     Indication: VARICOSE VEIN
     Dosage: 5 MG, QD, (ESCALATION FROM 2 TO 5 TABLETS PER DAY)
     Route: 065
  58. LEVOMECOL [Suspect]
     Active Substance: CHLORAMPHENICOL\6-METHYLURACIL
     Indication: RASH
     Dosage: UNK
     Route: 065
  59. METHYLENE BLUE. [Suspect]
     Active Substance: METHYLENE BLUE
     Indication: PUSTULE
     Dosage: UNK, SOLUTION
     Route: 003
  60. METHYLENE BLUE. [Suspect]
     Active Substance: METHYLENE BLUE
     Indication: TOXIC SKIN ERUPTION
  61. METHYLENE BLUE. [Suspect]
     Active Substance: METHYLENE BLUE
     Indication: PERIPHERAL VENOUS DISEASE
  62. AZITHROMYCIN ANHYDROUS. [Suspect]
     Active Substance: AZITHROMYCIN ANHYDROUS
     Indication: ARTHRITIS REACTIVE
  63. SULFACYL [SULFACETAMIDE SODIUM] [Suspect]
     Active Substance: SULFACETAMIDE SODIUM
     Indication: CONJUNCTIVITIS
  64. SULFACYL [SULFACETAMIDE SODIUM] [Suspect]
     Active Substance: SULFACETAMIDE SODIUM
     Indication: VARICOSE VEIN
  65. HYDROCORTISONE. [Suspect]
     Active Substance: HYDROCORTISONE
     Indication: CONJUNCTIVITIS

REACTIONS (2)
  - Product use in unapproved indication [Unknown]
  - Toxic epidermal necrolysis [Recovering/Resolving]

NARRATIVE: CASE EVENT DATE: 20191127
